FAERS Safety Report 5976470-4 (Version None)
Quarter: 2008Q4

REPORT INFORMATION
  Report Type: 
  Country: None (occurrence: None)
  Receive Date: 20081126
  Receipt Date: 20081118
  Transmission Date: 20090506
  Serious: Yes (Hospitalization)
  Sender: FDA-Public Use
  Company Number: 2008AL011367

PATIENT
  Age: 78 Year
  Sex: Male
  Weight: 65.7716 kg

DRUGS (1)
  1. DIGOXIN [Suspect]
     Indication: ARRHYTHMIA
     Dosage: 0.125MG, PO; OVER 2 YEARS
     Route: 048

REACTIONS (1)
  - NO ADVERSE EVENT [None]
